FAERS Safety Report 17699327 (Version 2)
Quarter: 2020Q2

REPORT INFORMATION
  Report Type: Spontaneous
  Country: PT (occurrence: PT)
  Receive Date: 20200423
  Receipt Date: 20200625
  Transmission Date: 20200714
  Serious: Yes (Other)
  Sender: FDA-Public Use
  Company Number: PT-SA-2020SA103998

PATIENT

DRUGS (2)
  1. ACECLOFENAC [Suspect]
     Active Substance: ACECLOFENAC
     Indication: ANALGESIC THERAPY
     Dosage: UNK
     Route: 065
  2. ENOXAPARIN SODIUM. [Suspect]
     Active Substance: ENOXAPARIN SODIUM
     Indication: PROPHYLAXIS
     Dosage: UNK
     Route: 065

REACTIONS (8)
  - Haemolytic anaemia [Recovering/Resolving]
  - Jaundice [Unknown]
  - Pyrexia [Unknown]
  - Asthenia [Unknown]
  - Leukocytosis [Unknown]
  - Normochromic normocytic anaemia [Unknown]
  - Vomiting [Unknown]
  - Neutrophilia [Unknown]
